FAERS Safety Report 5825440-5 (Version None)
Quarter: 2008Q3

REPORT INFORMATION
  Report Type: 
  Country: None (occurrence: None)
  Receive Date: 20080725
  Receipt Date: 20080725
  Transmission Date: 20090109
  Serious: Yes (Hospitalization)
  Sender: FDA-Public Use
  Company Number: None

PATIENT
  Age: 68 Year
  Sex: Male
  Weight: 102 kg

DRUGS (2)
  1. ZYVOX [Suspect]
     Indication: WOUND INFECTION STAPHYLOCOCCAL
     Dosage: 600MG TWICE DAILY PO
     Route: 048
     Dates: start: 20080707, end: 20080722
  2. SERTRALINE [Suspect]
     Indication: DEPRESSION
     Dosage: 150MG DAILY PO
     Route: 048

REACTIONS (6)
  - DYSPHORIA [None]
  - FEELING JITTERY [None]
  - NAUSEA [None]
  - PLATELET COUNT DECREASED [None]
  - VOMITING [None]
  - WOUND INFECTION STAPHYLOCOCCAL [None]
